FAERS Safety Report 10223662 (Version 2)
Quarter: 2014Q2

REPORT INFORMATION
  Report Type: Spontaneous
  Country: IE (occurrence: IE)
  Receive Date: 20140609
  Receipt Date: 20140629
  Transmission Date: 20141212
  Serious: Yes (Death)
  Sender: FDA-Public Use
  Company Number: IE-AMGEN INC.-IRLSP2014040820

PATIENT
  Age: 66 Year
  Sex: Female

DRUGS (10)
  1. ARANESP [Suspect]
     Indication: RENAL FAILURE CHRONIC
     Dosage: 30 MUG, Q2WK
     Route: 058
     Dates: start: 20091230
  2. BUTRANS                            /00444001/ [Concomitant]
  3. MOTILIUM                           /00498201/ [Concomitant]
  4. EPILIM CHRONO                      /00228502/ [Concomitant]
  5. COZAAR [Concomitant]
  6. AMLID [Concomitant]
  7. CIMELDINE [Concomitant]
  8. LEXAPRO                            /01588501/ [Concomitant]
  9. XANAX [Concomitant]
  10. CEPHALIN                           /00011001/ [Concomitant]

REACTIONS (1)
  - Road traffic accident [Fatal]
